FAERS Safety Report 7801308-X (Version None)
Quarter: 2011Q4

REPORT INFORMATION
  Report Type: 
  Country: None (occurrence: None)
  Receive Date: 20111006
  Receipt Date: 20111006
  Transmission Date: 20120403
  Serious: Yes (Hospitalization)
  Sender: FDA-Public Use
  Company Number: None

PATIENT
  Age: 80 Year
  Sex: Female
  Weight: 65.6 kg

DRUGS (16)
  1. ZESTRIL [Concomitant]
  2. COREG [Concomitant]
  3. PROVIGIL [Concomitant]
  4. BUMEX [Concomitant]
  5. VIT C [Concomitant]
  6. M.V.I. [Concomitant]
  7. REMERON [Concomitant]
  8. DUONEB [Concomitant]
  9. SPIRIVA [Concomitant]
  10. OMEPRAZOLE [Concomitant]
  11. NORVASC [Concomitant]
  12. CATAPRES [Concomitant]
  13. COUMADIN [Suspect]
     Indication: DEEP VEIN THROMBOSIS
     Dosage: 3MG QPM PO  RECENT
     Route: 048
  14. VIT D [Concomitant]
  15. VICODIN [Concomitant]
  16. LEXAPRO [Concomitant]

REACTIONS (3)
  - ANAEMIA [None]
  - GASTROINTESTINAL ARTERIOVENOUS MALFORMATION [None]
  - OCCULT BLOOD POSITIVE [None]
